FAERS Safety Report 10392351 (Version 1)
Quarter: 2014Q3

REPORT INFORMATION
  Report Type: Spontaneous
  Country: GB (occurrence: GB)
  Receive Date: 20140819
  Receipt Date: 20140819
  Transmission Date: 20150326
  Serious: Yes (Life-Threatening, Hospitalization, Other)
  Sender: FDA-Public Use
  Company Number: GB-AMGEN-GBRSP2014062484

PATIENT
  Age: 60 Year
  Sex: Female
  Weight: 81 kg

DRUGS (6)
  1. METFORMIN HYDROCHLORIDE. [Concomitant]
     Active Substance: METFORMIN HYDROCHLORIDE
  2. NOVOMIX [Concomitant]
     Active Substance: INSULIN ASPART
  3. OMEPRAZOLE. [Concomitant]
     Active Substance: OMEPRAZOLE
  4. COCODAMOL [Concomitant]
     Active Substance: ACETAMINOPHEN\CODEINE PHOSPHATE
  5. NPLATE [Suspect]
     Active Substance: ROMIPLOSTIM
     Indication: IMMUNE THROMBOCYTOPENIC PURPURA
     Dosage: 80 MUG, UNK
     Route: 058
     Dates: start: 20140318, end: 20140729
  6. LIRAGLUTIDE [Concomitant]
     Active Substance: LIRAGLUTIDE

REACTIONS (4)
  - Malaise [Recovering/Resolving]
  - Pulmonary embolism [Recovering/Resolving]
  - Dyspnoea exertional [Recovering/Resolving]
  - Pleuritic pain [Recovering/Resolving]

NARRATIVE: CASE EVENT DATE: 20140801
